FAERS Safety Report 6491897-2 (Version None)
Quarter: 2009Q4

REPORT INFORMATION
  Report Type: 
  Country: None (occurrence: None)
  Receive Date: 20091208
  Receipt Date: 20091117
  Transmission Date: 20100525
  Serious: Yes (Other)
  Sender: FDA-Public Use
  Company Number: 8053840

PATIENT
  Age: 13 Year
  Sex: Male
  Weight: 35.1 kg

DRUGS (8)
  1. KEPPRA [Suspect]
     Indication: CONVULSION
     Dosage: 500 MG 2/D PO
     Route: 048
  2. KEPPRA [Suspect]
     Indication: CONVULSION
     Dosage: 1000 MG 2/D PO
     Route: 048
     Dates: start: 20090301, end: 20090801
  3. CARBAMAZEPINE [Concomitant]
  4. LAMOTRIGINE [Concomitant]
  5. TOPIRAMATE [Concomitant]
  6. NITRAZEPAM [Concomitant]
  7. DOMPERIDONE [Concomitant]
  8. ERGOCALCIFEROL [Concomitant]

REACTIONS (2)
  - CONVULSION [None]
  - DYSKINESIA [None]
